FAERS Safety Report 7116313-9 (Version None)
Quarter: 2010Q4

REPORT INFORMATION
  Report Type: 
  Country: None (occurrence: None)
  Receive Date: 20101122
  Receipt Date: 20101115
  Transmission Date: 20110411
  Serious: Yes (Hospitalization, Congenital Anomaly)
  Sender: FDA-Public Use
  Company Number: A0847397A

PATIENT
  Sex: Male

DRUGS (3)
  1. PAXIL CR [Suspect]
  2. PAROXETINE HYDROCHLORIDE [Suspect]
     Dates: start: 20050101
  3. TRAZODONE [Concomitant]
     Dates: end: 20041215

REACTIONS (4)
  - ATRIAL SEPTAL DEFECT [None]
  - CRYPTORCHISM [None]
  - DRUG EXPOSURE DURING PREGNANCY [None]
  - PATENT DUCTUS ARTERIOSUS [None]
